FAERS Safety Report 10049214 (Version 2)
Quarter: 2014Q2

REPORT INFORMATION
  Report Type: Spontaneous
  Country: US (occurrence: US)
  Receive Date: 20140401
  Receipt Date: 20140411
  Transmission Date: 20141212
  Serious: No
  Sender: FDA-Public Use
  Company Number: US-BIOGENIDEC-2014BI029109

PATIENT
  Sex: Female
  Weight: 74 kg

DRUGS (16)
  1. TYSABRI [Suspect]
     Indication: RELAPSING-REMITTING MULTIPLE SCLEROSIS
     Route: 042
     Dates: start: 20110919
  2. AVONEX [Concomitant]
     Indication: MULTIPLE SCLEROSIS
     Route: 030
  3. BENADRYL [Concomitant]
     Indication: PREMEDICATION
     Route: 042
  4. TYLENOL [Concomitant]
     Indication: PREMEDICATION
     Route: 048
  5. BOTOX [Concomitant]
     Indication: TORTICOLLIS
     Route: 030
  6. VITAMIN B 1 [Concomitant]
     Indication: PRODUCT USED FOR UNKNOWN INDICATION
     Route: 048
  7. CALCIUM CITRATE [Concomitant]
     Indication: PRODUCT USED FOR UNKNOWN INDICATION
     Route: 048
  8. VITAMEN D 4 [Concomitant]
  9. OMEPRAZOLE [Concomitant]
     Route: 048
  10. CITALOPRAM HYDROBROMIDE [Concomitant]
     Route: 048
  11. GLYCERIN [Concomitant]
     Route: 054
  12. ACETAMINOPHEN [Concomitant]
     Route: 048
  13. MILK OF MAGNESIA [Concomitant]
     Route: 048
  14. FLEET ENEMA [Concomitant]
     Route: 054
  15. VASOLEX [Concomitant]
     Indication: PRODUCT USED FOR UNKNOWN INDICATION
  16. BETASERON [Concomitant]
     Indication: MULTIPLE SCLEROSIS

REACTIONS (3)
  - Prescribed underdose [Not Recovered/Not Resolved]
  - Respiratory tract infection [Unknown]
  - Torticollis [Not Recovered/Not Resolved]
